FAERS Safety Report 11078795 (Version 2)
Quarter: 2015Q2

REPORT INFORMATION
  Report Type: Spontaneous
  Country: US (occurrence: US)
  Receive Date: 20150430
  Receipt Date: 20150528
  Transmission Date: 20150821
  Serious: Yes (Disabling, Other)
  Sender: FDA-Public Use
  Company Number: US-ASTRAZENECA-2015SE40119

PATIENT
  Age: 21367 Day
  Sex: Female
  Weight: 113.9 kg

DRUGS (5)
  1. FARXIGA [Suspect]
     Active Substance: DAPAGLIFLOZIN PROPANEDIOL
     Indication: TYPE 2 DIABETES MELLITUS
     Route: 048
     Dates: start: 20150227, end: 20150415
  2. OMEPRAZOLE. [Concomitant]
     Active Substance: OMEPRAZOLE
     Indication: GASTROOESOPHAGEAL REFLUX DISEASE
     Route: 048
  3. FARXIGA [Suspect]
     Active Substance: DAPAGLIFLOZIN PROPANEDIOL
     Indication: BLOOD GLUCOSE ABNORMAL
     Route: 048
     Dates: start: 20150227, end: 20150415
  4. CARVEDILOL. [Concomitant]
     Active Substance: CARVEDILOL
     Indication: HYPERTENSION
     Route: 048
  5. HIPREX [Concomitant]
     Active Substance: METHENAMINE HIPPURATE
     Route: 048

REACTIONS (6)
  - Insomnia [Recovered/Resolved]
  - Dry mouth [Recovered/Resolved]
  - Palpitations [Recovered/Resolved]
  - Crying [Recovered/Resolved]
  - Emotional disorder [Recovered/Resolved]
  - Depression [Recovered/Resolved]

NARRATIVE: CASE EVENT DATE: 20150227
